FAERS Safety Report 6779418-8 (Version None)
Quarter: 2010Q2

REPORT INFORMATION
  Report Type: 
  Country: None (occurrence: None)
  Receive Date: 20100618
  Receipt Date: 20100616
  Transmission Date: 20101027
  Serious: Yes (Death)
  Sender: FDA-Public Use
  Company Number: PHHY2009CA45665

PATIENT
  Sex: Male

DRUGS (5)
  1. EXJADE [Suspect]
     Indication: MYELOPROLIFERATIVE DISORDER
     Dosage: 1500 MG, UNK
     Route: 048
  2. EXJADE [Suspect]
     Dosage: 1000 MG, QD
     Route: 048
     Dates: start: 20090801
  3. PREDNISOLONE [Concomitant]
     Dosage: 50 MG, UNK
  4. PROSCAR [Concomitant]
     Dosage: 20 MG, UNK
  5. RABEPRAZOLE SODIUM [Concomitant]
     Dosage: 20 MG, UNK

REACTIONS (7)
  - ABDOMINAL DISCOMFORT [None]
  - DEATH [None]
  - DYSPNOEA [None]
  - LIVER DISORDER [None]
  - OEDEMA PERIPHERAL [None]
  - RENAL DISORDER [None]
  - URINE OUTPUT DECREASED [None]
